FAERS Safety Report 19170271 (Version 1)
Quarter: 2021Q2

REPORT INFORMATION
  Report Type: Other
  Country: US (occurrence: US)
  Receive Date: 20210422
  Receipt Date: 20210422
  Transmission Date: 20210717
  Serious: No
  Sender: FDA-Public Use
  Company Number: US-CHIESI USA INC.-2021STPI000079

PATIENT
  Sex: Male

DRUGS (6)
  1. PENTASA [Concomitant]
     Active Substance: MESALAMINE
  2. SMZ?TMP [Concomitant]
     Active Substance: SULFAMETHOXAZOLE\TRIMETHOPRIM
  3. CARBAMAZEPINE. [Concomitant]
     Active Substance: CARBAMAZEPINE
  4. LAMOTRIGINE. [Concomitant]
     Active Substance: LAMOTRIGINE
  5. RISPERIDONE. [Concomitant]
     Active Substance: RISPERIDONE
  6. REVCOVI [Suspect]
     Active Substance: ELAPEGADEMASE-LVLR
     Indication: COMBINED IMMUNODEFICIENCY
     Dosage: 4.5 MILLILITER, EVERY WEDNESDAY AND 3ML EVERY SATURDAY
     Route: 030
     Dates: start: 20200109

REACTIONS (1)
  - Memory impairment [Not Recovered/Not Resolved]
